FAERS Safety Report 8354680-9 (Version None)
Quarter: 2012Q2

REPORT INFORMATION
  Report Type: 
  Country: None (occurrence: None)
  Receive Date: 20120511
  Receipt Date: 20120508
  Transmission Date: 20120825
  Serious: Yes (Life-Threatening, Hospitalization)
  Sender: FDA-Public Use
  Company Number: KE-ASTRAZENECA-2012SE30035

PATIENT
  Age: 3 Month
  Sex: Male
  Weight: 5.9 kg

DRUGS (6)
  1. FENTANYL CITRATE [Concomitant]
     Indication: GENERAL ANAESTHESIA
  2. HALOTHANE [Concomitant]
     Indication: GENERAL ANAESTHESIA
  3. ATRACURIUM [Concomitant]
     Indication: GENERAL ANAESTHESIA
  4. LIDOCAINE [Suspect]
     Indication: LOCAL ANAESTHESIA
     Dosage: 5 ML MIXED WITH 5 ML BUPIVACAINE AND 4 ML INJECTED
     Route: 058
  5. MORPHINE [Concomitant]
  6. BUPIVACAINE HCL [Suspect]
     Indication: LOCAL ANAESTHESIA
     Dosage: 5 ML MIXED WITH 5 ML LIDOCAINE AND 4 ML INJECTED
     Route: 058

REACTIONS (7)
  - SINUS TACHYCARDIA [None]
  - GRAND MAL CONVULSION [None]
  - VENTRICULAR FIBRILLATION [None]
  - VENTRICULAR EXTRASYSTOLES [None]
  - OVERDOSE [None]
  - VENTRICULAR TACHYCARDIA [None]
  - ATRIOVENTRICULAR BLOCK [None]
